FAERS Safety Report 15093885 (Version 1)
Quarter: 2018Q2

REPORT INFORMATION
  Report Type: Spontaneous
  Country: JP (occurrence: JP)
  Receive Date: 20180629
  Receipt Date: 20180629
  Transmission Date: 20180711
  Serious: Yes (Hospitalization)
  Sender: FDA-Public Use
  Company Number: JP-009507513-1806JPN012876

PATIENT
  Age: 69 Year
  Sex: Female

DRUGS (18)
  1. SODIUM FERROUS CITRATE [Suspect]
     Active Substance: SODIUM FERROUS CITRATE
     Dosage: 100 MG
     Route: 048
  2. HOKUNALIN [Suspect]
     Active Substance: TULOBUTEROL
     Dosage: 2 MG
     Route: 062
  3. VOLTAREN [Suspect]
     Active Substance: DICLOFENAC SODIUM
     Dosage: 50 MG
     Route: 048
  4. GLIMEPIRIDE. [Suspect]
     Active Substance: GLIMEPIRIDE
     Dosage: 2 DOSAGE FORM
     Route: 048
  5. MOHRUS [Suspect]
     Active Substance: KETOPROFEN
     Dosage: 1 DOSAGE FORM
     Route: 062
  6. LYRICA [Suspect]
     Active Substance: PREGABALIN
     Dosage: 25 MG
     Route: 048
  7. LANSOPRAZOLE. [Suspect]
     Active Substance: LANSOPRAZOLE
     Indication: GASTRITIS PROPHYLAXIS
     Dosage: 15 MG
     Route: 048
  8. BETANIS [Suspect]
     Active Substance: MIRABEGRON
     Dosage: 50 MG
     Route: 048
  9. GLACTIV [Suspect]
     Active Substance: SITAGLIPTIN
     Indication: TYPE 2 DIABETES MELLITUS
     Dosage: 50MG (STRENGTH: 12.5MG,25MG,50MG,100MG)
     Route: 048
  10. CILOSTAZOL. [Suspect]
     Active Substance: CILOSTAZOL
     Indication: COGNITIVE DISORDER
     Dosage: UNK
     Route: 048
     Dates: start: 20170322
  11. REBAMIPIDE [Suspect]
     Active Substance: REBAMIPIDE
     Indication: GASTRITIS PROPHYLAXIS
     Dosage: 200 MG
     Route: 048
  12. TIZANIDINE HYDROCHLORIDE. [Suspect]
     Active Substance: TIZANIDINE HYDROCHLORIDE
     Dosage: 1 MG
     Route: 048
  13. HERBAL NOS [Suspect]
     Active Substance: HERBALS
     Dosage: 5 G
     Route: 048
  14. LYRICA [Suspect]
     Active Substance: PREGABALIN
     Dosage: 75 MG
     Route: 048
  15. ZACRAS [Suspect]
     Active Substance: AMLODIPINE BESYLATE\AZILSARTAN
     Dosage: 1 DOSAGE FORM
     Route: 048
  16. SIMVASTATIN. [Suspect]
     Active Substance: SIMVASTATIN
     Dosage: 5 MG
     Route: 048
  17. MONTELUKAST SODIUM. [Suspect]
     Active Substance: MONTELUKAST SODIUM
     Dosage: 1 MG
     Route: 048
  18. METFORMIN HYDROCHLORIDE. [Suspect]
     Active Substance: METFORMIN HYDROCHLORIDE
     Dosage: 500 MG
     Route: 048

REACTIONS (1)
  - Intervertebral disc protrusion [Not Recovered/Not Resolved]

NARRATIVE: CASE EVENT DATE: 20180530
